FAERS Safety Report 13288750 (Version 8)
Quarter: 2018Q2

REPORT INFORMATION
  Report Type: Spontaneous
  Country: US (occurrence: US)
  Receive Date: 20170302
  Receipt Date: 20180411
  Transmission Date: 20180711
  Serious: No
  Sender: FDA-Public Use
  Company Number: US-PFIZER INC-2017087880

PATIENT
  Age: 44 Year
  Sex: Male

DRUGS (2)
  1. SUTENT [Suspect]
     Active Substance: SUNITINIB MALATE
     Indication: NEOPLASM MALIGNANT
     Dosage: 50 MG, DAILY  (1 CAPSULE BY MOUTH DAILY FOR 4 WEEKS)
     Route: 048
     Dates: start: 201702, end: 2017
  2. SUTENT [Suspect]
     Active Substance: SUNITINIB MALATE
     Dosage: 50 MG, DAILY (1 CAPSULE BY MOUTH DAILY FOR 4 WEEKS)
     Route: 048
     Dates: start: 201703

REACTIONS (9)
  - Skin hyperpigmentation [Unknown]
  - Tongue discomfort [Not Recovered/Not Resolved]
  - Nausea [Not Recovered/Not Resolved]
  - Yellow skin [Unknown]
  - Skin discolouration [Not Recovered/Not Resolved]
  - Diarrhoea [Not Recovered/Not Resolved]
  - Vomiting [Not Recovered/Not Resolved]
  - Chromaturia [Unknown]
  - Skin swelling [Unknown]

NARRATIVE: CASE EVENT DATE: 2017
